FAERS Safety Report 7655706-8 (Version None)
Quarter: 2011Q3

REPORT INFORMATION
  Report Type: 
  Country: None (occurrence: None)
  Receive Date: 20110729
  Receipt Date: 20110726
  Transmission Date: 20111222
  Serious: Yes (Other)
  Sender: FDA-Public Use
  Company Number: 201110654

PATIENT
  Sex: Female

DRUGS (1)
  1. LIORESAL [Suspect]
     Indication: MUSCLE SPASTICITY
     Dosage: 498 MCG, DAILY, INTRATHECAL
     Route: 037

REACTIONS (5)
  - CHOLECYSTECTOMY [None]
  - INJURY [None]
  - MALAISE [None]
  - DEVICE INVERSION [None]
  - PROCEDURAL COMPLICATION [None]
